FAERS Safety Report 6727765-8 (Version None)
Quarter: 2010Q2

REPORT INFORMATION
  Report Type: 
  Country: None (occurrence: None)
  Receive Date: 20100517
  Receipt Date: 20100503
  Transmission Date: 20101027
  Serious: No
  Sender: FDA-Public Use
  Company Number: FR-ELI_LILLY_AND_COMPANY-FR201003003748

PATIENT
  Age: 82 Year
  Sex: Female
  Weight: 63 kg

DRUGS (5)
  1. FORTEO [Suspect]
     Indication: OSTEOPOROSIS POSTMENOPAUSAL
     Dosage: 20 UG, DAILY (1/D)
     Route: 058
     Dates: start: 20090511
  2. VASTAREL [Concomitant]
     Indication: CORONARY ARTERY INSUFFICIENCY
     Dosage: 35 MG, UNKNOWN
     Route: 048
  3. NOOTROPYL [Concomitant]
     Dosage: 1600 MG, UNKNOWN
     Route: 048
     Dates: start: 20080201
  4. CERIS [Concomitant]
     Indication: URINARY INCONTINENCE
     Dosage: 2 TABLET, UNK
     Route: 048
     Dates: start: 20050101, end: 20090101
  5. CHONDROSULF [Concomitant]
     Indication: OSTEOARTHRITIS
     Dosage: 1200 MG, UNKNOWN
     Route: 048

REACTIONS (2)
  - PAIN [None]
  - PATHOLOGICAL FRACTURE [None]
